FAERS Safety Report 16395124 (Version 1)
Quarter: 2019Q2

REPORT INFORMATION
  Report Type: Spontaneous
  Country: FR (occurrence: FR)
  Receive Date: 20190605
  Receipt Date: 20190605
  Transmission Date: 20190711
  Serious: Yes (Life-Threatening)
  Sender: FDA-Public Use
  Company Number: FR-MYLANLABS-2019M1053597

PATIENT
  Age: 79 Year
  Sex: Female
  Weight: 90 kg

DRUGS (4)
  1. MYLAN REMIFENTANIL [Suspect]
     Active Substance: REMIFENTANIL
     Indication: INDUCTION OF ANAESTHESIA
     Dosage: UNK
     Route: 042
     Dates: start: 20181030, end: 20181030
  2. DIPRIVAN [Suspect]
     Active Substance: PROPOFOL
     Indication: INDUCTION OF ANAESTHESIA
     Dosage: UNK
     Route: 042
     Dates: start: 20181030, end: 20181030
  3. ESMERON [Suspect]
     Active Substance: ROCURONIUM BROMIDE
     Indication: INDUCTION OF ANAESTHESIA
     Dosage: UNK
     Route: 042
     Dates: start: 20181030, end: 20181030
  4. CEFAZOLINE PANPHARMA [Suspect]
     Active Substance: CEFAZOLIN SODIUM
     Indication: INDUCTION OF ANAESTHESIA
     Dosage: UNK
     Route: 042
     Dates: start: 20181030, end: 20181030

REACTIONS (1)
  - Anaphylactic shock [Recovered/Resolved]

NARRATIVE: CASE EVENT DATE: 20181030
